FAERS Safety Report 14270101 (Version 2)
Quarter: 2017Q4

REPORT INFORMATION
  Report Type: Spontaneous
  Country: NO (occurrence: NO)
  Receive Date: 20171211
  Receipt Date: 20171229
  Transmission Date: 20180321
  Serious: Yes (Hospitalization, Other)
  Sender: FDA-Public Use
  Company Number: NO-OTSUKA-2016_005187

PATIENT
  Age: 28 Year
  Sex: Male
  Weight: 78 kg

DRUGS (12)
  1. RISPERDAL [Suspect]
     Active Substance: RISPERIDONE
     Indication: PSYCHOTIC DISORDER
     Dosage: UNK
     Route: 065
     Dates: start: 20080401, end: 20100601
  2. VALLERGAN [Concomitant]
     Active Substance: TRIMEPRAZINE
     Indication: PRODUCT USED FOR UNKNOWN INDICATION
     Dosage: UNK
     Route: 065
  3. CHLORPROTHIXENE [Concomitant]
     Active Substance: CHLORPROTHIXENE
     Indication: PRODUCT USED FOR UNKNOWN INDICATION
     Dosage: UNK
     Route: 065
  4. ABILIFY [Suspect]
     Active Substance: ARIPIPRAZOLE
     Indication: PRODUCT USED FOR UNKNOWN INDICATION
     Dosage: UNK
     Route: 065
     Dates: start: 2015
  5. ABILIFY [Suspect]
     Active Substance: ARIPIPRAZOLE
     Dosage: UNK
     Route: 065
     Dates: start: 20080401, end: 200811
  6. RISPERDAL CONSTA [Suspect]
     Active Substance: RISPERIDONE
     Dosage: 25 MG, Q2WK
     Route: 065
     Dates: start: 20100601
  7. ABILIFY [Suspect]
     Active Substance: ARIPIPRAZOLE
     Indication: PSYCHOTIC DISORDER
     Dosage: UNK
     Route: 065
     Dates: start: 20080401, end: 20100601
  8. RISPERDAL [Suspect]
     Active Substance: RISPERIDONE
     Indication: PRODUCT USED FOR UNKNOWN INDICATION
     Dosage: UNK
     Route: 065
     Dates: start: 2002
  9. IMOVANE [Concomitant]
     Active Substance: ZOPICLONE
     Indication: PRODUCT USED FOR UNKNOWN INDICATION
     Dosage: UNK
     Route: 065
  10. RISPERDAL CONSTA [Suspect]
     Active Substance: RISPERIDONE
     Indication: PRODUCT USED FOR UNKNOWN INDICATION
     Dosage: 50 MG, Q2WK
     Route: 065
  11. RISPERDAL CONSTA [Suspect]
     Active Substance: RISPERIDONE
     Dosage: 37.5 MG, UNK
     Route: 065
     Dates: start: 2009
  12. RISPERDAL CONSTA [Suspect]
     Active Substance: RISPERIDONE
     Indication: PSYCHOTIC DISORDER
     Dosage: 37.5 MG, Q2WK
     Route: 065
     Dates: start: 20080401

REACTIONS (32)
  - Arthropathy [Unknown]
  - Panic disorder [Unknown]
  - Gastrointestinal pain [Unknown]
  - Feeling abnormal [Unknown]
  - Arrhythmia [Recovered/Resolved]
  - Suicidal ideation [Unknown]
  - Panic reaction [Unknown]
  - Colitis ulcerative [Unknown]
  - Limb discomfort [Unknown]
  - Weight increased [Unknown]
  - Feeling of despair [Unknown]
  - Claustrophobia [Unknown]
  - Osteoporosis [Unknown]
  - Grip strength decreased [Unknown]
  - Hyperaesthesia [Unknown]
  - Muscle spasms [Unknown]
  - Impaired work ability [Unknown]
  - Obesity [Unknown]
  - Insomnia [Unknown]
  - Unevaluable event [Unknown]
  - Apathy [Unknown]
  - Asthenia [Unknown]
  - Lethargy [Unknown]
  - Abdominal discomfort [Unknown]
  - Anhedonia [Unknown]
  - Anxiety [Unknown]
  - Mobility decreased [Unknown]
  - Restlessness [Unknown]
  - Muscular weakness [Unknown]
  - Panic attack [Unknown]
  - Musculoskeletal stiffness [Unknown]
  - Product use in unapproved indication [Unknown]

NARRATIVE: CASE EVENT DATE: 20080701
